FAERS Safety Report 13438441 (Version 2)
Quarter: 2017Q2

REPORT INFORMATION
  Report Type: Spontaneous
  Country: HU (occurrence: HU)
  Receive Date: 20170413
  Receipt Date: 20170602
  Transmission Date: 20170830
  Serious: Yes (Death, Other)
  Sender: FDA-Public Use
  Company Number: HU-JNJFOC-20170410971

PATIENT
  Age: 72 Year
  Sex: Male

DRUGS (2)
  1. IMBRUVICA [Suspect]
     Active Substance: IBRUTINIB
     Indication: WALDENSTROM^S MACROGLOBULINAEMIA
     Route: 048
     Dates: start: 20161222, end: 20170103
  2. IMBRUVICA [Suspect]
     Active Substance: IBRUTINIB
     Indication: WALDENSTROM^S MACROGLOBULINAEMIA
     Route: 048
     Dates: start: 20160802, end: 20161108

REACTIONS (5)
  - Treatment noncompliance [Recovered/Resolved]
  - Pancytopenia [Fatal]
  - Waldenstrom^s macroglobulinaemia [Fatal]
  - Sepsis [Fatal]
  - Anaemia [Unknown]

NARRATIVE: CASE EVENT DATE: 20161108
